FAERS Safety Report 5924645-2 (Version None)
Quarter: 2008Q4

REPORT INFORMATION
  Report Type: 
  Country: None (occurrence: None)
  Receive Date: 20081016
  Receipt Date: 20080929
  Transmission Date: 20090506
  Serious: Yes (Hospitalization)
  Sender: FDA-Public Use
  Company Number: 002#2#2008-00405

PATIENT
  Age: 76 Year
  Sex: Male
  Weight: 88.4514 kg

DRUGS (24)
  1. NEUPRO [Suspect]
     Indication: PARKINSON'S DISEASE
     Dosage: 4MG/24H, 1 IN 1D,TRANSDERMAL
     Route: 062
     Dates: start: 20080122, end: 20080506
  2. SANCTURA XR [Suspect]
     Indication: POLLAKIURIA
     Dates: end: 20080501
  3. PAXIL [Concomitant]
  4. ASPIRIN [Concomitant]
  5. FOLTX [Concomitant]
  6. NEXIUM [Concomitant]
  7. ISOSORBIDE MONONITRATE [Concomitant]
  8. POTASSIUM CHLORIDE [Concomitant]
  9. LIPITOR [Concomitant]
  10. TYLENOL [Concomitant]
  11. LASIX [Concomitant]
  12. REQUIP [Concomitant]
  13. SINEMET [Concomitant]
  14. ALLOPURINOL [Concomitant]
  15. FLOMAX [Concomitant]
  16. AZILECT [Concomitant]
  17. PLAVIX [Concomitant]
  18. DETROL [Concomitant]
  19. FOSINIPRIL [Concomitant]
  20. AMANTADINE HCL [Concomitant]
  21. NITROGLYCERIN SL [Concomitant]
  22. LOVAZA [Concomitant]
  23. VITAMIN B6 [Concomitant]
  24. ALLEGRA [Concomitant]

REACTIONS (5)
  - BLOOD PRESSURE ORTHOSTATIC DECREASED [None]
  - DIZZINESS [None]
  - FALL [None]
  - LACERATION [None]
  - WEIGHT DECREASED [None]
